FAERS Safety Report 4440337-3 (Version None)
Quarter: 2004Q3

REPORT INFORMATION
  Report Type: 
  Country: None (occurrence: None)
  Receive Date: 20040902
  Receipt Date: 20040823
  Transmission Date: 20050211
  Serious: Yes (Hospitalization)
  Sender: FDA-Public Use
  Company Number: 6010168

PATIENT
  Age: 70 Year
  Sex: Female

DRUGS (8)
  1. DETENSIEL (10 MG, TABLETS) (BISOPROLOL) [Suspect]
     Dosage: ORAL
     Route: 048
     Dates: start: 20031201
  2. COZAAR [Suspect]
     Dosage: ORAL
     Route: 048
     Dates: start: 20031201
  3. INIPOMP (PANTOPRAZOLE) [Suspect]
     Dosage: ORAL
     Route: 048
     Dates: end: 20040719
  4. CORTANCYL (PREDNISONE) [Concomitant]
  5. DIAMICRON (GLICLAZIDE) [Concomitant]
  6. MOCLAMINE (MOCLOBEMIDE) [Concomitant]
  7. DIGOXIN [Concomitant]
  8. FLECAINIDE ACETATE [Concomitant]

REACTIONS (2)
  - HYPONATRAEMIA [None]
  - IMPLANT SITE INFECTION [None]
